FAERS Safety Report 9307106 (Version 1)
Quarter: 2013Q2

REPORT INFORMATION
  Report Type: Spontaneous
  Country: US (occurrence: US)
  Receive Date: 20130524
  Receipt Date: 20130524
  Transmission Date: 20140414
  Serious: No
  Sender: FDA-Public Use
  Company Number: US-009507513-1305USA012243

PATIENT
  Sex: Male

DRUGS (9)
  1. VICTRELIS [Suspect]
     Indication: HEPATITIS C
     Dosage: 800 MG, TID. TAKE 4 CAPSULES (800 MG) BY MOUTH THREE TIMES A DAY (EVERY 7-9 HOURS)
     Route: 048
  2. RIBAPAK [Suspect]
     Dosage: 1000 DF/DAY
  3. NORVASC [Concomitant]
  4. CARAFATE [Concomitant]
  5. METFORMIN [Concomitant]
  6. LISINOPRIL [Concomitant]
  7. OMEPRAZOLE [Concomitant]
  8. SPIRIVA [Concomitant]
     Dosage: HANDIHLR
  9. XIFAXAN [Concomitant]

REACTIONS (1)
  - Rash [Unknown]
